FAERS Safety Report 4699053-5 (Version None)
Quarter: 2005Q2

REPORT INFORMATION
  Report Type: 
  Country: None (occurrence: None)
  Receive Date: 20050624
  Receipt Date: 20050620
  Transmission Date: 20051028
  Serious: Yes (Hospitalization, Other)
  Sender: FDA-Public Use
  Company Number: PHFR2005GB02208

PATIENT
  Age: 39 Year
  Sex: Female

DRUGS (2)
  1. LAMISIL [Suspect]
     Indication: NAIL INFECTION
     Dosage: 250MG/DAY
     Route: 048
     Dates: start: 20050427, end: 20050524
  2. SERTRALINE HCL [Concomitant]
     Indication: ANXIETY
     Dosage: 50 MG, QD
     Route: 048
     Dates: start: 20040701

REACTIONS (7)
  - ABNORMAL BEHAVIOUR [None]
  - CONFUSIONAL STATE [None]
  - DISEASE RECURRENCE [None]
  - DISTRACTIBILITY [None]
  - INSOMNIA [None]
  - MENTAL DISORDER [None]
  - SUSPICIOUSNESS [None]
